FAERS Safety Report 4967649-9 (Version None)
Quarter: 2006Q2

REPORT INFORMATION
  Report Type: 
  Country: None (occurrence: None)
  Receive Date: 20060410
  Receipt Date: 20050922
  Transmission Date: 20061013
  Serious: Yes (Hospitalization)
  Sender: FDA-Public Use
  Company Number: US-MERCK-0509USA03606

PATIENT
  Age: 72 Year
  Sex: Female
  Weight: 64 kg

DRUGS (16)
  1. VIOXX [Suspect]
     Indication: SPINAL COLUMN STENOSIS
     Route: 048
     Dates: start: 20020301, end: 20040901
  2. VIOXX [Suspect]
     Indication: INTERVERTEBRAL DISC PROTRUSION
     Route: 048
     Dates: start: 20020301, end: 20040901
  3. SYNTHROID [Concomitant]
     Route: 065
  4. COUMADIN [Concomitant]
     Route: 065
  5. BETAPACE [Concomitant]
     Route: 065
  6. COLCHICINE [Concomitant]
     Route: 065
  7. LIPITOR [Concomitant]
     Route: 065
     Dates: start: 20020801
  8. LEXAPRO [Concomitant]
     Route: 065
  9. PLAVIX [Concomitant]
     Route: 065
     Dates: start: 20011201, end: 20031001
  10. TRIAMTERENE [Concomitant]
     Route: 065
  11. LEVAQUIN [Concomitant]
     Route: 065
  12. MECLIZINE HYDROCHLORIDE [Concomitant]
     Route: 065
  13. CLINDAMYCIN HYDROCHLORIDE [Concomitant]
     Route: 065
  14. WARFARIN [Concomitant]
     Route: 065
  15. CIPRO [Concomitant]
     Route: 065
  16. AMIODARONE HYDROCHLORIDE [Concomitant]
     Route: 065

REACTIONS (13)
  - ANGINA PECTORIS [None]
  - ANHEDONIA [None]
  - ANXIETY [None]
  - ARRHYTHMIA [None]
  - BLOOD CHOLESTEROL INCREASED [None]
  - BRADYCARDIA [None]
  - CEREBROVASCULAR ACCIDENT [None]
  - CHEST PAIN [None]
  - EXTRASYSTOLES [None]
  - MULTI-ORGAN DISORDER [None]
  - PALPITATIONS [None]
  - PERICARDITIS [None]
  - TACHYCARDIA [None]
